FAERS Safety Report 10891326 (Version 10)
Quarter: 2015Q3

REPORT INFORMATION
  Report Type: Spontaneous
  Country: AR (occurrence: AR)
  Receive Date: 20150306
  Receipt Date: 20150923
  Transmission Date: 20151125
  Serious: Yes (Hospitalization, Other)
  Sender: FDA-Public Use
  Company Number: AR-PFIZER INC-2014319154

PATIENT
  Age: 62 Year
  Sex: Male

DRUGS (8)
  1. BENADRYL [Suspect]
     Active Substance: DIPHENHYDRAMINE HYDROCHLORIDE
     Dosage: UNK
  2. SUTENT [Suspect]
     Active Substance: SUNITINIB MALATE
     Dosage: 50 MG, CYCLIC (14 DAYS ON, 7 DAYS OFF)
     Dates: end: 20141118
  3. SUTENT [Suspect]
     Active Substance: SUNITINIB MALATE
     Dosage: CYCLIC (14 DAYS ON, 7 DAYS OFF)
     Dates: start: 20141121, end: 20141202
  4. SUTENT [Suspect]
     Active Substance: SUNITINIB MALATE
     Dosage: CYCLIC (14 DAYS ON, 7 DAYS OFF)
     Dates: start: 20150221, end: 20150308
  5. SUTENT [Suspect]
     Active Substance: SUNITINIB MALATE
     Dosage: 37.5 MG, CYCLIC (14 DAYS OFF,7 DAYS OFF)
  6. SUTENT [Suspect]
     Active Substance: SUNITINIB MALATE
     Dosage: 37.5 MG, CYCLIC (2/1 SCHEME)
  7. SUTENT [Suspect]
     Active Substance: SUNITINIB MALATE
     Indication: METASTATIC RENAL CELL CARCINOMA
     Dosage: 50 MG, CYCLIC (14 DAYS ON, 7 DAYS OFF)
     Dates: start: 20140728
  8. SUTENT [Suspect]
     Active Substance: SUNITINIB MALATE
     Dosage: UNK

REACTIONS (43)
  - Cough [Not Recovered/Not Resolved]
  - Atypical pneumonia [Recovered/Resolved]
  - Agitation [Not Recovered/Not Resolved]
  - Eructation [Not Recovered/Not Resolved]
  - Speech disorder [Not Recovered/Not Resolved]
  - Retching [Unknown]
  - Emotional disorder [Unknown]
  - Stomatitis [Not Recovered/Not Resolved]
  - Swelling face [Not Recovered/Not Resolved]
  - Skin disorder [Unknown]
  - Influenza [Recovering/Resolving]
  - Feeling cold [Recovering/Resolving]
  - Nasopharyngitis [Recovered/Resolved]
  - Vomiting [Recovered/Resolved]
  - Eating disorder [Not Recovered/Not Resolved]
  - Delirium [Not Recovered/Not Resolved]
  - Dysphagia [Recovering/Resolving]
  - White blood cell count decreased [Not Recovered/Not Resolved]
  - Blood pressure increased [Not Recovered/Not Resolved]
  - Malaise [Unknown]
  - Swelling [Unknown]
  - Dyspnoea [Recovering/Resolving]
  - Colitis [Recovered/Resolved]
  - Eye swelling [Not Recovered/Not Resolved]
  - Fluid intake reduced [Recovering/Resolving]
  - Skin discolouration [Not Recovered/Not Resolved]
  - Dehydration [Not Recovered/Not Resolved]
  - Fatigue [Not Recovered/Not Resolved]
  - Malaise [Recovering/Resolving]
  - Sunburn [Not Recovered/Not Resolved]
  - Hiccups [Unknown]
  - Insomnia [Not Recovered/Not Resolved]
  - General physical health deterioration [Not Recovered/Not Resolved]
  - Tachycardia [Not Recovered/Not Resolved]
  - Depression [Not Recovered/Not Resolved]
  - Oropharyngeal pain [Recovering/Resolving]
  - Weight decreased [Recovered/Resolved]
  - Dyspnoea [Not Recovered/Not Resolved]
  - Nausea [Not Recovered/Not Resolved]
  - Disease progression [Unknown]
  - Metastatic renal cell carcinoma [Unknown]
  - Somnolence [Recovering/Resolving]
  - Malaise [Recovered/Resolved]

NARRATIVE: CASE EVENT DATE: 2014
